FAERS Safety Report 6430175-4 (Version None)
Quarter: 2009Q4

REPORT INFORMATION
  Report Type: 
  Country: None (occurrence: None)
  Receive Date: 20091106
  Receipt Date: 20091103
  Transmission Date: 20100525
  Serious: Yes (Death, Hospitalization, Other)
  Sender: FDA-Public Use
  Company Number: PHEH2009US06599

PATIENT
  Sex: Female
  Weight: 61.224 kg

DRUGS (6)
  1. SANDOSTATIN LAR [Suspect]
     Indication: CARCINOID TUMOUR
     Dosage: 60 MG, QMO
     Dates: end: 20090201
  2. PANTOPRAZOLE [Concomitant]
     Indication: GASTROOESOPHAGEAL REFLUX DISEASE
     Dosage: 1 DF, QD
     Route: 048
  3. REGLAN [Concomitant]
     Indication: NAUSEA
     Dosage: 1 DF, BID
     Route: 048
  4. LASIX [Concomitant]
     Indication: OEDEMA
     Dosage: 1 DF, QD
     Route: 048
  5. METFORMIN HCL [Concomitant]
     Indication: DIABETES MELLITUS
     Dosage: 1 DF, BID
     Route: 048
  6. RESTORIL [Concomitant]
     Indication: SLEEP DISORDER
     Dosage: 1 DF, QD
     Route: 048

REACTIONS (9)
  - ASTHENIA [None]
  - CARDIAC FAILURE CONGESTIVE [None]
  - CONFUSIONAL STATE [None]
  - DEHYDRATION [None]
  - MENTAL STATUS CHANGES [None]
  - NAUSEA [None]
  - NEOPLASM RECURRENCE [None]
  - PANCREATIC CARCINOMA [None]
  - VOMITING [None]
